FAERS Safety Report 5849020-0 (Version None)
Quarter: 2008Q3

REPORT INFORMATION
  Report Type: 
  Country: None (occurrence: None)
  Receive Date: 20080815
  Receipt Date: 20080806
  Transmission Date: 20090109
  Serious: Yes (Other)
  Sender: FDA-Public Use
  Company Number: 2008SP001891

PATIENT
  Age: 52 Year
  Sex: Female

DRUGS (8)
  1. OMNARIS NASAL SPRAY               (CICLESONIDE AQ) [Suspect]
     Dosage: NASAL
     Route: 045
  2. OMEPRAZOLE [Concomitant]
  3. FLOVENT [Concomitant]
  4. VENTOLIN [Concomitant]
  5. METOPROLOL TARTRATE [Concomitant]
  6. DIOVAN [Concomitant]
  7. XENICAL [Concomitant]
  8. LASIX [Concomitant]

REACTIONS (7)
  - CONFUSIONAL STATE [None]
  - CONJUNCTIVITIS ALLERGIC [None]
  - CONTUSION [None]
  - DYSPHONIA [None]
  - NASAL CONGESTION [None]
  - OCULAR HYPERAEMIA [None]
  - OEDEMA PERIPHERAL [None]
